FAERS Safety Report 8828282 (Version 2)
Quarter: 2012Q4

REPORT INFORMATION
  Report Type: 
  Country: GB (occurrence: GB)
  Receive Date: 20121008
  Receipt Date: 20121031
  Transmission Date: 20130627
  Serious: Yes (Other)
  Sender: FDA-Public Use
  Company Number: PHFR2012GB005223

PATIENT
  Sex: Male

DRUGS (9)
  1. TEGRETOL [Suspect]
     Indication: EPILEPSY
     Dosage: 3 DF, BID (three tablets in the morning and 3 tablets in the evening)
     Route: 048
     Dates: start: 19940114
  2. KEPPRA [Concomitant]
     Dates: start: 1993
  3. SANDOSTATIN [Concomitant]
     Dates: start: 1993
  4. INDOMETACIN [Concomitant]
     Dates: start: 1999
  5. LANSOPRAZOLE [Concomitant]
     Dosage: 300 mg, QD
     Route: 048
  6. ASPIRIN [Concomitant]
     Dosage: 75 mg, UNK
     Route: 048
  7. ATENOLOL [Concomitant]
  8. LAMOTRIGINE [Concomitant]
     Dosage: 50 mg, BID
     Route: 048
  9. ATORVASTATIN [Concomitant]
     Route: 048

REACTIONS (4)
  - Hepatic steatosis [Unknown]
  - Liver function test abnormal [Unknown]
  - Hypertension [Unknown]
  - Overweight [Unknown]
